FAERS Safety Report 5390015-1 (Version None)
Quarter: 2007Q3

REPORT INFORMATION
  Report Type: 
  Country: None (occurrence: None)
  Receive Date: 20070718
  Receipt Date: 20070717
  Transmission Date: 20080115
  Serious: Yes (Other)
  Sender: FDA-Public Use
  Company Number: HQ7348614JUN2000

PATIENT
  Sex: Male
  Weight: 76.27 kg

DRUGS (1)
  1. ADVIL COLD AND SINUS [Suspect]
     Indication: PULMONARY CONGESTION
     Dosage: 1 QID
     Route: 048

REACTIONS (3)
  - ATRIAL FIBRILLATION [None]
  - HYPERHIDROSIS [None]
  - TACHYCARDIA [None]
